FAERS Safety Report 12701205 (Version 2)
Quarter: 2017Q2

REPORT INFORMATION
  Report Type: Spontaneous
  Country: DE (occurrence: DE)
  Receive Date: 20160831
  Receipt Date: 20170412
  Transmission Date: 20170830
  Serious: No
  Sender: FDA-Public Use
  Company Number: DE-AMGEN-DEUSP2016111356

PATIENT
  Age: 14 Year
  Sex: Female

DRUGS (7)
  1. METRONIDAZOLE. [Concomitant]
     Active Substance: METRONIDAZOLE
     Indication: PSEUDOMONAS INFECTION
     Dosage: 30 MG/KG/DAY
  2. NEUPOGEN [Suspect]
     Active Substance: FILGRASTIM
     Indication: AGRANULOCYTOSIS
     Dosage: AT A DOSE UP TO 18 MCG/KG/DAY FOR 8 DAYS
     Route: 065
  3. MEROPENEM. [Concomitant]
     Active Substance: MEROPENEM
     Indication: PSEUDOMONAS INFECTION
     Dosage: 3 G/DAY
  4. DOPAMINE [Concomitant]
     Active Substance: DOPAMINE\DOPAMINE HYDROCHLORIDE
     Indication: BLOOD PRESSURE MANAGEMENT
     Dosage: UP TO 17.5 MCG/KG/MIN
  5. METAMIZOLE [Suspect]
     Active Substance: METAMIZOLE
     Indication: WOUND COMPLICATION
     Dosage: FREQUENTLY WITH 3 G/DAY (40 MG/KG BODY WEIGHT IN THREE SINGLE DOSES, MAXIMUM 5 G/DAY)
     Route: 065
  6. METAMIZOLE [Suspect]
     Active Substance: METAMIZOLE
     Indication: IMPAIRED HEALING
  7. CLINDAMYCIN. [Concomitant]
     Active Substance: CLINDAMYCIN
     Indication: PSEUDOMONAS INFECTION
     Dosage: 20 MG/KG/DAY

REACTIONS (1)
  - Drug ineffective [Unknown]
